FAERS Safety Report 5888430-2 (Version None)
Quarter: 2008Q3

REPORT INFORMATION
  Report Type: 
  Country: None (occurrence: None)
  Receive Date: 20080918
  Receipt Date: 20080910
  Transmission Date: 20090109
  Serious: Yes (Other)
  Sender: FDA-Public Use
  Company Number: US-PFIZER INC-2008076387

PATIENT
  Sex: Female

DRUGS (1)
  1. NORVASC [Suspect]

REACTIONS (4)
  - HYPERHIDROSIS [None]
  - ORAL DISCOMFORT [None]
  - PSYCHOTIC DISORDER [None]
  - UNEVALUABLE EVENT [None]
